FAERS Safety Report 16184590 (Version 1)
Quarter: 2019Q2

REPORT INFORMATION
  Report Type: Spontaneous
  Country: US (occurrence: US)
  Receive Date: 20190410
  Receipt Date: 20190410
  Transmission Date: 20190711
  Serious: Yes (Disabling)
  Sender: FDA-Public Use
  Company Number: None

PATIENT
  Age: 42 Year
  Sex: Male
  Weight: 92.25 kg

DRUGS (3)
  1. PROPECIA [Suspect]
     Active Substance: FINASTERIDE
     Indication: ANDROGENETIC ALOPECIA
     Dosage: ?          QUANTITY:1 TABLET(S);?
     Route: 048
  2. JALYN [Suspect]
     Active Substance: DUTASTERIDE\TAMSULOSIN HYDROCHLORIDE
     Indication: PROSTATIC DISORDER
     Dosage: ?          QUANTITY:1 CAPSULE(S);?
     Route: 048
  3. AMINO ACIDS, ESSENTIAL AND NON-ESSENTIAL [Concomitant]

REACTIONS (10)
  - Loss of libido [None]
  - Body fat disorder [None]
  - Pain in extremity [None]
  - Muscle atrophy [None]
  - Dry skin [None]
  - Sexual dysfunction [None]
  - Gynaecomastia [None]
  - Feeling abnormal [None]
  - Skin haemorrhage [None]
  - Impaired healing [None]

NARRATIVE: CASE EVENT DATE: 20000910
